FAERS Safety Report 15239057 (Version 1)
Quarter: 2018Q3

REPORT INFORMATION
  Report Type: Spontaneous
  Country: GB (occurrence: GB)
  Receive Date: 20180803
  Receipt Date: 20180803
  Transmission Date: 20181010
  Serious: Yes (Other)
  Sender: FDA-Public Use
  Company Number: GB-TEVA-2018-GB-934453

PATIENT
  Age: 73 Year
  Sex: Female

DRUGS (1)
  1. DOXYCYCLINE HYCLATE. [Suspect]
     Active Substance: DOXYCYCLINE HYCLATE
     Indication: PRODUCT USED FOR UNKNOWN INDICATION
     Dosage: AFTER FOOD WITH WATER,?STRENGTH: 100 MG?2 TABLETS ON THE FIRST DAY, AND NOW 1 PER DAY FOR 7 DAYS
     Route: 048

REACTIONS (2)
  - Headache [Not Recovered/Not Resolved]
  - Suicidal ideation [Not Recovered/Not Resolved]
